FAERS Safety Report 5068453-6 (Version None)
Quarter: 2006Q3

REPORT INFORMATION
  Report Type: 
  Country: None (occurrence: None)
  Receive Date: 20060802
  Receipt Date: 20051005
  Transmission Date: 20061208
  Serious: No
  Sender: FDA-Public Use
  Company Number: US-BRISTOL-MYERS SQUIBB COMPANY-13134713

PATIENT
  Age: 77 Year
  Sex: Male
  Weight: 77 kg

DRUGS (9)
  1. COUMADIN [Suspect]
     Indication: ATRIAL FIBRILLATION
     Dosage: 2.5 MG FOUR TIMES PER WEEK AND 5 MG THREE TIMES PER WEEK.
     Route: 048
     Dates: start: 20050101
  2. VITAMIN E [Concomitant]
  3. ATENOLOL [Concomitant]
  4. DIGOXIN [Concomitant]
  5. VOLTAREN [Concomitant]
  6. TIMOLOL MALEATE [Concomitant]
     Route: 047
  7. TRUSOPT [Concomitant]
     Route: 047
  8. COENZYME Q10 [Concomitant]
  9. MULTIVITAMIN [Concomitant]

REACTIONS (1)
  - INTERNATIONAL NORMALISED RATIO DECREASED [None]
